FAERS Safety Report 8570613-4 (Version None)
Quarter: 2012Q3

REPORT INFORMATION
  Report Type: 
  Country: None (occurrence: None)
  Receive Date: 20120804
  Receipt Date: 20120723
  Transmission Date: 20120928
  Serious: No
  Sender: FDA-Public Use
  Company Number: US-ASTRAZENECA-2012SE52320

PATIENT
  Age: 47 Year
  Sex: Female

DRUGS (6)
  1. SEROQUEL [Suspect]
     Indication: SLEEP DISORDER
     Route: 048
  2. TOPROL-XL [Suspect]
     Route: 048
  3. CELEBREX [Concomitant]
  4. BACLOFEN [Concomitant]
  5. NEURONTIN [Concomitant]
  6. COUMADIN [Concomitant]

REACTIONS (2)
  - MUSCLE SPASMS [None]
  - PAIN [None]
